FAERS Safety Report 4319036-4 (Version None)
Quarter: 2004Q1

REPORT INFORMATION
  Report Type: 
  Country: None (occurrence: None)
  Receive Date: 20040318
  Receipt Date: 20040311
  Transmission Date: 20041129
  Serious: Yes (Other)
  Sender: FDA-Public Use
  Company Number: PHNU2004DE01194

PATIENT
  Sex: Female

DRUGS (2)
  1. TEGRETOL [Suspect]
     Indication: TRIGEMINAL NEURALGIA
     Dosage: 200MG/DAY
     Route: 048
     Dates: start: 20040220
  2. TEGRETOL [Suspect]
     Dosage: 200 MG, BID
     Route: 048
     Dates: end: 20040311

REACTIONS (7)
  - CARDIOMEGALY [None]
  - HEART RATE INCREASED [None]
  - INFECTION [None]
  - MYOCARDITIS [None]
  - PNEUMONIA [None]
  - PYREXIA [None]
  - SINUS TACHYCARDIA [None]
